FAERS Safety Report 6033345-2 (Version None)
Quarter: 2009Q1

REPORT INFORMATION
  Report Type: 
  Country: None (occurrence: None)
  Receive Date: 20090105
  Receipt Date: 20080821
  Transmission Date: 20090719
  Serious: Yes (Hospitalization)
  Sender: FDA-Public Use
  Company Number: US-001786

PATIENT
  Age: 76 Year
  Sex: Male
  Weight: 97.7 kg

DRUGS (2)
  1. MULTIHANCE [Suspect]
     Indication: NUCLEAR MAGNETIC RESONANCE IMAGING
     Dosage: 20ML QD INTRAVENOUS (NOT OTHERWISE SPECIFIED)
     Route: 042
     Dates: start: 20080818, end: 20080818
  2. MULTIHANCE [Suspect]
     Indication: RENAL MASS
     Dosage: 20ML QD INTRAVENOUS (NOT OTHERWISE SPECIFIED)
     Route: 042
     Dates: start: 20080818, end: 20080818

REACTIONS (1)
  - ANAPHYLACTIC SHOCK [None]
